FAERS Safety Report 4557125-X (Version None)
Quarter: 2005Q1

REPORT INFORMATION
  Report Type: 
  Country: None (occurrence: None)
  Receive Date: 20050119
  Receipt Date: 20050119
  Transmission Date: 20050727
  Serious: Yes (Hospitalization)
  Sender: FDA-Public Use
  Company Number: None

PATIENT
  Age: 50 Year
  Sex: Male
  Weight: 96.1626 kg

DRUGS (7)
  1. QUETIAPINE   300MG [Suspect]
     Indication: SCHIZOAFFECTIVE DISORDER
     Dosage: 300MG  QBED    ORAL
     Route: 048
     Dates: start: 20040810, end: 20041118
  2. TYLENOL W/ CODEINE NO. 3 [Concomitant]
  3. ENALAPRIL [Concomitant]
  4. GLYBURIDE [Concomitant]
  5. NITROGLYCERIN [Concomitant]
  6. OMEPRAZOLE [Concomitant]
  7. PAROXETINE [Concomitant]

REACTIONS (1)
  - PRIAPISM [None]
